FAERS Safety Report 7794464-3 (Version None)
Quarter: 2011Q3

REPORT INFORMATION
  Report Type: 
  Country: None (occurrence: None)
  Receive Date: 20110930
  Receipt Date: 20110923
  Transmission Date: 20111222
  Serious: Yes (Other)
  Sender: FDA-Public Use
  Company Number: 2011SP042297

PATIENT
  Age: 63 Year
  Sex: Female

DRUGS (7)
  1. DEXAMETHASONE [Suspect]
     Indication: MULTIPLE MYELOMA
     Dosage: 40 MG;QD
     Dates: start: 20100701
  2. LENALIDOMIDE [Suspect]
     Indication: MULTIPLE MYELOMA
     Dosage: 15 MG;QD ; 5 MG;QD ; 5 MG;QOD ; 5 MG;QD ; 10 MG;QD ; 10 MG;QD
     Dates: start: 20100701
  3. LENALIDOMIDE [Suspect]
     Indication: MULTIPLE MYELOMA
     Dosage: 15 MG;QD ; 5 MG;QD ; 5 MG;QOD ; 5 MG;QD ; 10 MG;QD ; 10 MG;QD
  4. LENALIDOMIDE [Suspect]
     Indication: MULTIPLE MYELOMA
     Dosage: 15 MG;QD ; 5 MG;QD ; 5 MG;QOD ; 5 MG;QD ; 10 MG;QD ; 10 MG;QD
     Dates: start: 20090401
  5. LENALIDOMIDE [Suspect]
     Indication: MULTIPLE MYELOMA
     Dosage: 15 MG;QD ; 5 MG;QD ; 5 MG;QOD ; 5 MG;QD ; 10 MG;QD ; 10 MG;QD
  6. LENALIDOMIDE [Suspect]
     Indication: MULTIPLE MYELOMA
     Dosage: 15 MG;QD ; 5 MG;QD ; 5 MG;QOD ; 5 MG;QD ; 10 MG;QD ; 10 MG;QD
  7. VELCADE [Suspect]
     Indication: MULTIPLE MYELOMA

REACTIONS (3)
  - POLYNEUROPATHY [None]
  - PANCYTOPENIA [None]
  - HAEMORRHAGIC DIATHESIS [None]
